FAERS Safety Report 7474078-5 (Version None)
Quarter: 2011Q2

REPORT INFORMATION
  Report Type: 
  Country: None (occurrence: None)
  Receive Date: 20110511
  Receipt Date: 20110427
  Transmission Date: 20111010
  Serious: Yes (Life-Threatening, Hospitalization, Other)
  Sender: FDA-Public Use
  Company Number: GB-WATSON-2011-06240

PATIENT
  Age: 62 Year
  Sex: Male

DRUGS (8)
  1. LORAZEPAM [Suspect]
     Indication: ANXIETY
     Dosage: 1 MG AM, 0.5 MG PM, DAILYX2WKS
  2. TEMAZEPAM [Suspect]
     Indication: ANXIETY
     Dosage: UNK
  3. LORAZEPAM [Suspect]
     Dosage: 1 MG, BID
  4. DIAZEPAM [Suspect]
     Indication: DRUG DEPENDENCE
     Dosage: 2 MG AM, 5 MG PM, DAILY
  5. ALPRAZOLAM [Suspect]
     Indication: DEPRESSED MOOD
     Dosage: UNK
  6. LORAZEPAM [Suspect]
     Dosage: UP TO 6 MG, DAILY
  7. FLUOXETINE [Suspect]
     Indication: DEPRESSION
     Dosage: 20 MG, DAILY
  8. ZOPICLONE [Suspect]
     Indication: DRUG DEPENDENCE
     Dosage: 7.5 MG, QPM

REACTIONS (13)
  - SELF INJURIOUS BEHAVIOUR [None]
  - ANXIETY [None]
  - AGITATION [None]
  - PANIC REACTION [None]
  - FEAR [None]
  - INTENTIONAL OVERDOSE [None]
  - PARAESTHESIA [None]
  - SLEEP DISORDER [None]
  - DRUG WITHDRAWAL SYNDROME [None]
  - EUPHORIC MOOD [None]
  - SUICIDE ATTEMPT [None]
  - TREATMENT NONCOMPLIANCE [None]
  - DRUG DEPENDENCE [None]
